FAERS Safety Report 23469911 (Version 3)
Quarter: 2024Q2

REPORT INFORMATION
  Report Type: Spontaneous
  Country: US (occurrence: US)
  Receive Date: 20240202
  Receipt Date: 20240412
  Transmission Date: 20240717
  Serious: Yes (Hospitalization, Other)
  Sender: FDA-Public Use
  Company Number: US-HIKMA PHARMACEUTICALS-US-H14001-24-00787

PATIENT
  Age: 18 Year
  Sex: Female
  Weight: 72 kg

DRUGS (15)
  1. CYTARABINE [Suspect]
     Active Substance: CYTARABINE
     Indication: B-cell type acute leukaemia
     Dosage: 70 MILLIGRAM, ONCE
     Route: 042
     Dates: start: 20221011
  2. MERCAPTOPURINE [Suspect]
     Active Substance: MERCAPTOPURINE
     Indication: B-cell type acute leukaemia
     Dosage: 50 MILLIGRAM, QD
     Route: 048
     Dates: start: 20221116
  3. METHOTREXATE [Suspect]
     Active Substance: METHOTREXATE
     Indication: B-cell type acute leukaemia
     Dosage: UNKNOWN
     Route: 048
  4. METHOTREXATE [Suspect]
     Active Substance: METHOTREXATE
     Indication: B-cell type acute leukaemia
     Dosage: 15 MILLIGRAM, ONCE
     Route: 037
     Dates: start: 20221017
  5. METHOTREXATE [Suspect]
     Active Substance: METHOTREXATE
     Dosage: 185 MILLIGRAM
     Route: 042
     Dates: start: 20221017, end: 20230818
  6. METHOTREXATE [Suspect]
     Active Substance: METHOTREXATE
     Dosage: 185 MILLIGRAM
     Route: 042
     Dates: start: 20230824
  7. PEGASPARGASE [Suspect]
     Active Substance: PEGASPARGASE
     Indication: B-cell type acute leukaemia
     Dosage: 2500 INTERNATIONAL UNIT/M2
     Route: 042
     Dates: start: 20221011, end: 20230731
  8. RUXOLITINIB [Suspect]
     Active Substance: RUXOLITINIB
     Dosage: 85 MILLIGRAM, BID
     Route: 048
     Dates: start: 20230918
  9. RUXOLITINIB [Suspect]
     Active Substance: RUXOLITINIB
     Indication: B-cell type acute leukaemia
     Dosage: 85 MILLIGRAM, BID
     Route: 048
     Dates: start: 20221116, end: 20230902
  10. VINCRISTINE [Suspect]
     Active Substance: VINCRISTINE
     Dosage: 2 MILLIGRAM
     Route: 042
     Dates: start: 20230824
  11. VINCRISTINE [Suspect]
     Active Substance: VINCRISTINE
     Indication: B-cell type acute leukaemia
     Dosage: 2 MILLIGRAM, ONCE
     Route: 042
     Dates: start: 20221008, end: 20230818
  12. ACETAMINOPHEN [Concomitant]
     Active Substance: ACETAMINOPHEN
     Indication: Product used for unknown indication
     Dosage: UNK
     Route: 065
     Dates: start: 20221006
  13. DIPHENHYDRAMINE [Concomitant]
     Active Substance: DIPHENHYDRAMINE
     Indication: Product used for unknown indication
     Dosage: UNK
     Route: 065
     Dates: start: 20221012
  14. FAMOTIDINE [Concomitant]
     Active Substance: FAMOTIDINE
     Indication: Product used for unknown indication
     Dosage: UNK
     Route: 065
     Dates: start: 20221009, end: 20230731
  15. GABAPENTIN [Concomitant]
     Active Substance: GABAPENTIN
     Indication: Product used for unknown indication
     Dosage: UNKNOWN
     Route: 065

REACTIONS (19)
  - Fatigue [Recovered/Resolved]
  - Febrile neutropenia [Recovered/Resolved]
  - Anaemia [Recovered/Resolved]
  - Diarrhoea [Recovered/Resolved]
  - Increased tendency to bruise [Recovered/Resolved]
  - Oropharyngeal pain [Recovered/Resolved]
  - Headache [Recovered/Resolved]
  - Cough [Recovered/Resolved]
  - Mucosal inflammation [Recovered/Resolved]
  - Malaise [Unknown]
  - Pancytopenia [Unknown]
  - Paranasal sinus discomfort [Unknown]
  - Nasal congestion [Unknown]
  - Vomiting [Unknown]
  - Nausea [Unknown]
  - Oral pain [Unknown]
  - Stomatitis [Unknown]
  - Throat irritation [Unknown]
  - Eating disorder [Unknown]

NARRATIVE: CASE EVENT DATE: 20230815
